FAERS Safety Report 19614761 (Version 1)
Quarter: 2021Q3

REPORT INFORMATION
  Report Type: Spontaneous
  Country: US (occurrence: US)
  Receive Date: 20210726
  Receipt Date: 20210726
  Transmission Date: 20211014
  Serious: Yes (Hospitalization)
  Sender: FDA-Public Use
  Company Number: None

PATIENT
  Age: 49 Year
  Sex: Female

DRUGS (15)
  1. HYDROCOD/IBU [Concomitant]
  2. CEFDINIR. [Concomitant]
     Active Substance: CEFDINIR
  3. SMZ/TMP DS [Concomitant]
     Active Substance: SULFAMETHOXAZOLE\TRIMETHOPRIM
  4. BENZONATATE. [Concomitant]
     Active Substance: BENZONATATE
  5. METHYLPRED [Concomitant]
     Active Substance: METHYLPREDNISOLONE
  6. TREMFYA [Suspect]
     Active Substance: GUSELKUMAB
     Indication: PSORIATIC ARTHROPATHY
     Dosage: 1 PEN  Q8WK SQ?
     Route: 058
     Dates: start: 20201224
  7. DEXAMETHASON [Concomitant]
     Active Substance: DEXAMETHASONE
  8. NYSTOP [Concomitant]
     Active Substance: NYSTATIN
  9. CLINDAMYCIN. [Concomitant]
     Active Substance: CLINDAMYCIN
  10. CLOBETASOL OIN [Concomitant]
  11. ALBUTEROL HFA [Concomitant]
     Active Substance: ALBUTEROL SULFATE
  12. METOPROL SUC ER [Concomitant]
     Active Substance: METOPROLOL SUCCINATE
  13. PROMETHAZINE SYP [Concomitant]
  14. TRINTELLIX [Concomitant]
     Active Substance: VORTIOXETINE HYDROBROMIDE
  15. BUSPIRONE [Concomitant]
     Active Substance: BUSPIRONE HYDROCHLORIDE

REACTIONS (2)
  - Therapy interrupted [None]
  - COVID-19 [None]

NARRATIVE: CASE EVENT DATE: 202105
